FAERS Safety Report 14013782 (Version 1)
Quarter: 2017Q3

REPORT INFORMATION
  Report Type: Spontaneous
  Country: US (occurrence: US)
  Receive Date: 20170926
  Receipt Date: 20170926
  Transmission Date: 20171128
  Serious: No
  Sender: FDA-Public Use
  Company Number: US-ACTELION-A-NJ2017-159981

PATIENT
  Age: 63 Year
  Sex: Male

DRUGS (6)
  1. VITAMIN D3 [Concomitant]
     Active Substance: CHOLECALCIFEROL
  2. WARFARIN [Concomitant]
     Active Substance: WARFARIN
  3. MAGNESIUM [Concomitant]
     Active Substance: MAGNESIUM
  4. VALCHLOR [Suspect]
     Active Substance: MECHLORETHAMINE
     Indication: MYCOSIS FUNGOIDES
     Dosage: UNK
     Route: 061
     Dates: start: 20170812
  5. GLUCOSAMINE HYDROCHLORIDE [Concomitant]
     Active Substance: GLUCOSAMINE HYDROCHLORIDE
  6. NIACIN. [Concomitant]
     Active Substance: NIACIN

REACTIONS (2)
  - Pruritus [Unknown]
  - Erythema [Unknown]
